FAERS Safety Report 11231181 (Version 1)
Quarter: 2015Q3

REPORT INFORMATION
  Report Type: Spontaneous
  Country: US (occurrence: US)
  Receive Date: 20150701
  Receipt Date: 20150701
  Transmission Date: 20151125
  Serious: Yes (Other)
  Sender: FDA-Public Use
  Company Number: US-SA-2015SA094292

PATIENT
  Age: 17 Year
  Sex: Female
  Weight: 56.69 kg

DRUGS (8)
  1. ADVIL COLD AND SINUS [Concomitant]
     Active Substance: IBUPROFEN\PSEUDOEPHEDRINE HYDROCHLORIDE
     Dates: start: 20150427
  2. BENADRYL [Concomitant]
     Active Substance: DIPHENHYDRAMINE HYDROCHLORIDE
     Dosage: LIQUID-GEL
     Dates: start: 20140721
  3. ZYRTEC [Concomitant]
     Active Substance: CETIRIZINE HYDROCHLORIDE
  4. MOTRIN IB [Concomitant]
     Active Substance: IBUPROFEN
     Dates: start: 20150427
  5. CEREZYME [Suspect]
     Active Substance: IMIGLUCERASE
     Indication: LIPIDOSIS
     Dosage: DOSE:7.06 UNIT(S)/KILOGRAM BODYWEIGHT
     Route: 042
     Dates: start: 20100303
  6. DIPHENHYDRAMINE HYDROCHLORIDE. [Concomitant]
     Active Substance: DIPHENHYDRAMINE HYDROCHLORIDE
     Dosage: DOSE:50 MILLIGRAM(S)/MILLILITRE
     Route: 042
     Dates: start: 20141121
  7. EPIPEN [Concomitant]
     Active Substance: EPINEPHRINE
     Dosage: EPIPEN AUTOINJECTOR : 0.3 MG AS DIRECTED
     Route: 030
     Dates: start: 20141121
  8. NORMAL SALINE [Concomitant]
     Active Substance: SODIUM CHLORIDE
     Dosage: 0.9 % AS DIRECTED; DILU, FLUSH
     Route: 042
     Dates: start: 20141121

REACTIONS (2)
  - Respiratory tract infection [Not Recovered/Not Resolved]
  - Pyrexia [Not Recovered/Not Resolved]
